FAERS Safety Report 19344377 (Version 1)
Quarter: 2021Q2

REPORT INFORMATION
  Report Type: Spontaneous
  Country: US (occurrence: US)
  Receive Date: 20210530
  Receipt Date: 20210530
  Transmission Date: 20210717
  Serious: Yes (Hospitalization, Other)
  Sender: FDA-Public Use
  Company Number: US-AMGEN-USASP2021081806

PATIENT
  Age: 19 Year
  Sex: Male

DRUGS (4)
  1. PREDNISOLONE. [Concomitant]
     Active Substance: PREDNISOLONE
     Dosage: UNK
  2. RITUXIMAB. [Suspect]
     Active Substance: RITUXIMAB
     Indication: THROMBOTIC THROMBOCYTOPENIC PURPURA
     Route: 065
  3. RITUXIMAB. [Suspect]
     Active Substance: RITUXIMAB
     Indication: OFF LABEL USE
  4. ECULIZUMAB [Concomitant]
     Active Substance: ECULIZUMAB
     Dosage: UNK

REACTIONS (9)
  - Blood creatine increased [Unknown]
  - Encephalopathy [Unknown]
  - Seizure [Unknown]
  - Off label use [Unknown]
  - Schistocytosis [Unknown]
  - Thrombotic thrombocytopenic purpura [Unknown]
  - Drug effective for unapproved indication [Unknown]
  - Cerebellar infarction [Unknown]
  - Acute kidney injury [Recovering/Resolving]
